FAERS Safety Report 5468244-8 (Version None)
Quarter: 2007Q3

REPORT INFORMATION
  Report Type: 
  Country: None (occurrence: None)
  Receive Date: 20070925
  Receipt Date: 20070906
  Transmission Date: 20080115
  Serious: Yes (Other)
  Sender: FDA-Public Use
  Company Number: DSA_30638_2007

PATIENT
  Age: 72 Year
  Sex: Female

DRUGS (2)
  1. TILDIEM (TILDIEM - DILTIAZEM [Suspect]
     Indication: ATRIAL FIBRILLATION
     Dosage: 240 MG QD ORAL
     Route: 048
  2. ACETYLSALICYLIC ACID SRT [Suspect]
     Indication: DRUG USE FOR UNKNOWN INDICATION
     Dosage: 75 MG QD

REACTIONS (1)
  - ATRIAL FIBRILLATION [None]
